FAERS Safety Report 25305317 (Version 1)
Quarter: 2025Q2

REPORT INFORMATION
  Report Type: Report from Study
  Country: US (occurrence: US)
  Receive Date: 20250513
  Receipt Date: 20250513
  Transmission Date: 20250717
  Serious: Yes (Other)
  Sender: ROCHE
  Company Number: US-ROCHE-10000275078

PATIENT
  Age: 36 Year
  Sex: Male

DRUGS (16)
  1. CELLCEPT [Suspect]
     Active Substance: MYCOPHENOLATE MOFETIL
     Indication: Renal transplant
     Dosage: 250MG CAPSULE
     Route: 048
  2. TYLENOL [Concomitant]
     Active Substance: ACETAMINOPHEN
  3. NORVASC [Concomitant]
     Active Substance: AMLODIPINE BESYLATE
  4. ADDERALL [Concomitant]
     Active Substance: AMPHETAMINE ASPARTATE\AMPHETAMINE SULFATE\DEXTROAMPHETAMINE SACCHARATE\DEXTROAMPHETAMINE SULFATE
  5. ASPIRIN [Concomitant]
     Active Substance: ASPIRIN
  6. MEPRON [Concomitant]
     Active Substance: ATOVAQUONE
  7. COREG [Concomitant]
     Active Substance: CARVEDILOL
  8. SENSIPAR [Concomitant]
     Active Substance: CINACALCET HYDROCHLORIDE
  9. DOXAZOSIN MESYLATE [Concomitant]
     Active Substance: DOXAZOSIN MESYLATE
  10. PEPCID [Concomitant]
     Active Substance: FAMOTIDINE
  11. ULORIC [Concomitant]
     Active Substance: FEBUXOSTAT
  12. MAGNESIUM CITRATE [Concomitant]
     Active Substance: MAGNESIUM CITRATE
  13. DELTASONE [Concomitant]
     Active Substance: PREDNISONE
  14. TACROLIMUS [Concomitant]
     Active Substance: TACROLIMUS
  15. FLOMAX [Concomitant]
     Active Substance: TAMSULOSIN HYDROCHLORIDE
  16. TESTOSTERONE [Concomitant]
     Active Substance: TESTOSTERONE

REACTIONS (27)
  - Essential hypertension [Unknown]
  - Anaphylactic shock [Unknown]
  - Hyperuricaemia [Unknown]
  - Anxiety disorder [Unknown]
  - Nephrogenic anaemia [Unknown]
  - Iron deficiency anaemia [Unknown]
  - Seizure [Unknown]
  - Alcoholic seizure [Unknown]
  - Brain contusion [Unknown]
  - Chronic fatigue syndrome [Unknown]
  - Seizure [Unknown]
  - Hypersomnia [Unknown]
  - Sleep disorder [Unknown]
  - Phosphorus metabolism disorder [Unknown]
  - Liver disorder [Unknown]
  - Hyperkalaemia [Unknown]
  - Hypomagnesaemia [Unknown]
  - Chronic kidney disease [Unknown]
  - Single functional kidney [Unknown]
  - Proteinuria [Unknown]
  - Renal aplasia [Unknown]
  - Dysuria [Unknown]
  - Micturition disorder [Unknown]
  - Chronic kidney disease [Unknown]
  - Craniofacial fracture [Unknown]
  - Skull fracture [Unknown]
  - Craniofacial fracture [Unknown]
